FAERS Safety Report 4498848-0 (Version None)
Quarter: 2004Q3

REPORT INFORMATION
  Report Type: 
  Country: None (occurrence: None)
  Receive Date: 20040927
  Receipt Date: 20040621
  Transmission Date: 20050211
  Serious: No
  Sender: FDA-Public Use
  Company Number: USA040670721

PATIENT
  Age: 8 Year
  Sex: Male
  Weight: 25 kg

DRUGS (2)
  1. STRATTERA [Suspect]
     Dosage: 25 MG/1 DAY
     Dates: start: 20031201
  2. FOCALIN [Concomitant]

REACTIONS (2)
  - HAIR PLUCKING [None]
  - NERVOUSNESS [None]
